FAERS Safety Report 15651132 (Version 3)
Quarter: 2019Q3

REPORT INFORMATION
  Report Type: Report from Study
  Country: JP (occurrence: JP)
  Receive Date: 20181123
  Receipt Date: 20190702
  Transmission Date: 20191004
  Serious: Yes (Death, Life-Threatening, Other)
  Sender: FDA-Public Use
  Company Number: JP-AMGEN-JPNNI2018168606

PATIENT
  Age: 63 Year
  Sex: Male
  Weight: 67 kg

DRUGS (6)
  1. CARFILZOMIB [Suspect]
     Active Substance: CARFILZOMIB
     Indication: PLASMA CELL MYELOMA
     Dosage: 20 MILLIGRAM/SQ. METER, QD
     Route: 041
     Dates: start: 20170525, end: 20170526
  2. ACICLOVIR [Concomitant]
     Active Substance: ACYCLOVIR
     Indication: ANTIVIRAL PROPHYLAXIS
     Dosage: 200 MILLIGRAM, QD
     Route: 065
     Dates: start: 20170622, end: 20170926
  3. CARFILZOMIB [Suspect]
     Active Substance: CARFILZOMIB
     Dosage: 44 MILLIGRAM/SQ. METER, QD
     Route: 041
     Dates: start: 20170908, end: 20170908
  4. VALTREX [Concomitant]
     Active Substance: VALACYCLOVIR HYDROCHLORIDE
     Indication: ANTIVIRAL PROPHYLAXIS
     Dosage: 3 GRAM, QD
     Route: 065
     Dates: start: 20170613, end: 20170619
  5. DEXAMETHASONE. [Concomitant]
     Active Substance: DEXAMETHASONE
     Indication: PLASMA CELL MYELOMA
     Dosage: 20 MG/DAY(25/05/2017, 26/05, 01/06, 02/06, 08/06, 09/06, 22/06, 23/06, 29/06, 06/07, 14/07, 28/07, 1
     Route: 065
     Dates: start: 20170525, end: 20170908
  6. CARFILZOMIB [Suspect]
     Active Substance: CARFILZOMIB
     Dosage: 56 MG/M2/DAY(01/06/2017, 02/06, 08/06, 09/06, 22/06, 23/06, 29/06, 06/07, 28/07, 10/08, 25/08
     Route: 041
     Dates: start: 20170601, end: 20170825

REACTIONS (3)
  - Thrombocytopenia [Not Recovered/Not Resolved]
  - Thrombocytopenia [Recovering/Resolving]
  - Gastrointestinal disorder [Recovered/Resolved]

NARRATIVE: CASE EVENT DATE: 20170629
